FAERS Safety Report 18785711 (Version 2)
Quarter: 2022Q1

REPORT INFORMATION
  Report Type: Report from Study
  Country: US (occurrence: None)
  Receive Date: 20210125
  Receipt Date: 20220215
  Transmission Date: 20220423
  Serious: Yes (Death, Hospitalization)
  Sender: FDA-Public Use
  Company Number: US-ROCHE-2615985

PATIENT
  Age: 68 Year
  Sex: Male
  Weight: 93.8 kg

DRUGS (2)
  1. RITUXIMAB [Suspect]
     Active Substance: RITUXIMAB
     Indication: Hairy cell leukaemia
     Dosage: 2 MG/ML
     Route: 041
     Dates: start: 20200512
  2. PENTOSTATIN [Suspect]
     Active Substance: PENTOSTATIN
     Indication: Hairy cell leukaemia
     Route: 042
     Dates: start: 20200512

REACTIONS (4)
  - Acute kidney injury [Recovered/Resolved]
  - Tumour lysis syndrome [Unknown]
  - Dyspnoea [Fatal]
  - Supraventricular tachycardia [Fatal]

NARRATIVE: CASE EVENT DATE: 20200528
